FAERS Safety Report 25997211 (Version 1)
Quarter: 2025Q4

REPORT INFORMATION
  Report Type: Spontaneous
  Country: US (occurrence: US)
  Receive Date: 20251104
  Receipt Date: 20251104
  Transmission Date: 20260117
  Serious: No
  Sender: PFIZER
  Company Number: US-PFIZER INC-PV202500129771

PATIENT
  Age: 59 Year
  Sex: Female

DRUGS (1)
  1. ZOSYN [Suspect]
     Active Substance: PIPERACILLIN SODIUM\TAZOBACTAM SODIUM
     Dosage: UNK
     Dates: start: 2009

REACTIONS (3)
  - Occupational exposure to product [Unknown]
  - Exposure via skin contact [Unknown]
  - Erythema [Unknown]

NARRATIVE: CASE EVENT DATE: 20090101
